FAERS Safety Report 10077902 (Version 4)
Quarter: 2015Q1

REPORT INFORMATION
  Report Type: Report from Study
  Country: CA (occurrence: CA)
  Receive Date: 20140415
  Receipt Date: 20150324
  Transmission Date: 20150720
  Serious: Yes (Other)
  Sender: FDA-Public Use
  Company Number: CA-AMGEN-CANSP2014025182

PATIENT
  Age: 88 Year
  Sex: Female

DRUGS (7)
  1. PROLIA [Suspect]
     Active Substance: DENOSUMAB
     Indication: OSTEOPOROSIS POSTMENOPAUSAL
     Dosage: 60 MG, Q6MO
     Route: 058
     Dates: start: 20131128
  2. ADALAT CC [Concomitant]
     Active Substance: NIFEDIPINE
     Dosage: 20 MG, QD
  3. CALCIUM [Concomitant]
     Active Substance: CALCIUM
  4. APO OMEPRAZOLE [Concomitant]
     Dosage: 20 MG, QD
  5. VALSARTAN. [Concomitant]
     Active Substance: VALSARTAN
     Indication: BLOOD PRESSURE
     Dosage: 160 MG, QD
  6. VITAMIN D                          /00107901/ [Concomitant]
     Active Substance: ERGOCALCIFEROL
  7. ASPIRIN. [Concomitant]
     Active Substance: ASPIRIN
     Dosage: UNK

REACTIONS (21)
  - Depressed level of consciousness [Not Recovered/Not Resolved]
  - Rash papular [Not Recovered/Not Resolved]
  - Musculoskeletal discomfort [Unknown]
  - Emotional disorder [Not Recovered/Not Resolved]
  - Spinal fracture [Not Recovered/Not Resolved]
  - Blood pressure systolic increased [Not Recovered/Not Resolved]
  - Hypoaesthesia [Not Recovered/Not Resolved]
  - Throat irritation [Not Recovered/Not Resolved]
  - Foot fracture [Recovering/Resolving]
  - Dry skin [Not Recovered/Not Resolved]
  - Herpes zoster [Recovered/Resolved]
  - Depressed mood [Not Recovered/Not Resolved]
  - Oropharyngeal pain [Not Recovered/Not Resolved]
  - Breast discomfort [Recovering/Resolving]
  - Dysphagia [Not Recovered/Not Resolved]
  - Pain in extremity [Not Recovered/Not Resolved]
  - Mobility decreased [Not Recovered/Not Resolved]
  - Stress [Unknown]
  - Rib fracture [Not Recovered/Not Resolved]
  - Dysgeusia [Not Recovered/Not Resolved]
  - Abdominal pain upper [Not Recovered/Not Resolved]

NARRATIVE: CASE EVENT DATE: 201311
